FAERS Safety Report 5976173-6 (Version None)
Quarter: 2008Q4

REPORT INFORMATION
  Report Type: 
  Country: None (occurrence: None)
  Receive Date: 20081202
  Receipt Date: 20081128
  Transmission Date: 20090506
  Serious: Yes (Hospitalization)
  Sender: FDA-Public Use
  Company Number: FR-TEVA-181450ISR

PATIENT
  Sex: Female

DRUGS (4)
  1. VINCRISTINE SULFATE [Suspect]
     Indication: MANTLE CELL LYMPHOMA
     Route: 042
     Dates: start: 20080819, end: 20080825
  2. METHOTREXATE [Suspect]
     Indication: MANTLE CELL LYMPHOMA
     Route: 042
     Dates: start: 20080819, end: 20080819
  3. DOXORUBICIN HCL [Suspect]
     Indication: MANTLE CELL LYMPHOMA
     Route: 042
     Dates: start: 20080820, end: 20080820
  4. CYCLOPHOSPHAMIDE [Suspect]
     Indication: MANTLE CELL LYMPHOMA
     Route: 042
     Dates: start: 20080820, end: 20080822

REACTIONS (6)
  - ARTHRALGIA [None]
  - DYSPHAGIA [None]
  - EAR PAIN [None]
  - FEBRILE BONE MARROW APLASIA [None]
  - LUNG DISORDER [None]
  - ODYNOPHAGIA [None]
